FAERS Safety Report 21119604 (Version 1)
Quarter: 2022Q3

REPORT INFORMATION
  Report Type: Spontaneous
  Country: US (occurrence: None)
  Receive Date: 20220721
  Receipt Date: 20220721
  Transmission Date: 20221027
  Serious: Yes (Hospitalization)
  Sender: FDA-Public Use
  Company Number: None

PATIENT
  Age: 75 Year
  Sex: Female
  Weight: 65.1 kg

DRUGS (3)
  1. OXALIPLATIN [Suspect]
     Active Substance: OXALIPLATIN
     Indication: Adenocarcinoma of colon
     Dosage: FREQUENCY : ONCE;?
     Route: 042
     Dates: start: 20220711, end: 20220711
  2. LEUCOVORIN [Suspect]
     Active Substance: LEUCOVORIN
     Dates: start: 20220711, end: 20220711
  3. FLUOROURACIL [Suspect]
     Active Substance: FLUOROURACIL
     Dates: start: 20220711, end: 20220711

REACTIONS (5)
  - Dizziness [None]
  - Paraesthesia [None]
  - Dyspnoea [None]
  - Chest pain [None]
  - Infusion related reaction [None]

NARRATIVE: CASE EVENT DATE: 20220711
